FAERS Safety Report 4699530-7 (Version None)
Quarter: 2005Q2

REPORT INFORMATION
  Report Type: 
  Country: None (occurrence: None)
  Receive Date: 20050622
  Receipt Date: 20050517
  Transmission Date: 20051028
  Serious: Yes (Hospitalization)
  Sender: FDA-Public Use
  Company Number: B0344789A

PATIENT
  Age: 31 Year
  Sex: Female

DRUGS (4)
  1. RETROVIR [Suspect]
     Dosage: 300 MG/PER DAY
     Dates: start: 20030825
  2. EFAVIRENZ [Suspect]
     Dosage: 600 MG/ PER DAY
     Dates: start: 20030825
  3. LAMIVUDINE [Concomitant]
  4. NEVIRAPINE [Concomitant]

REACTIONS (5)
  - ANHEDONIA [None]
  - DISEASE RECURRENCE [None]
  - MAJOR DEPRESSION [None]
  - POST-TRAUMATIC STRESS DISORDER [None]
  - TREATMENT NONCOMPLIANCE [None]
